FAERS Safety Report 17330422 (Version 2)
Quarter: 2020Q1

REPORT INFORMATION
  Report Type: Report from Study
  Country: US (occurrence: US)
  Receive Date: 20200127
  Receipt Date: 20200320
  Transmission Date: 20200409
  Serious: Yes (Hospitalization)
  Sender: FDA-Public Use
  Company Number: US-ACTELION-A-US2017-155057

PATIENT
  Age: 69 Year
  Sex: Female
  Weight: 65.31 kg

DRUGS (6)
  1. ADEMPAS [Concomitant]
     Active Substance: RIOCIGUAT
  2. COUMADIN [Concomitant]
     Active Substance: WARFARIN SODIUM
  3. ELIQUIS [Concomitant]
     Active Substance: APIXABAN
  4. DILTIAZEM. [Concomitant]
     Active Substance: DILTIAZEM
  5. UPTRAVI [Suspect]
     Active Substance: SELEXIPAG
     Indication: PULMONARY HYPERTENSION
     Dosage: 1000 MCG, BID
     Route: 048
  6. UPTRAVI [Suspect]
     Active Substance: SELEXIPAG
     Dosage: 1000 MCG, BID
     Route: 048

REACTIONS (18)
  - Bone pain [Unknown]
  - Macular degeneration [Unknown]
  - Bladder disorder [Unknown]
  - Concomitant disease aggravated [Unknown]
  - Chest pain [Unknown]
  - Facial pain [Unknown]
  - Cellulitis [Not Recovered/Not Resolved]
  - Eye degenerative disorder [Unknown]
  - Cardiac stress test abnormal [Unknown]
  - Abdominal pain upper [Unknown]
  - Headache [Unknown]
  - Dizziness [Unknown]
  - Abdominal distension [Unknown]
  - Hypotension [Unknown]
  - Hospitalisation [Unknown]
  - Myalgia [Unknown]
  - Phlebitis [Unknown]
  - Gastrooesophageal reflux disease [Unknown]

NARRATIVE: CASE EVENT DATE: 20170605
